FAERS Safety Report 6883570-3 (Version None)
Quarter: 2010Q3

REPORT INFORMATION
  Report Type: 
  Country: None (occurrence: None)
  Receive Date: 20100708
  Receipt Date: 20100205
  Transmission Date: 20110219
  Serious: Yes (Other)
  Sender: FDA-Public Use
  Company Number: 2010022357

PATIENT
  Age: 49 Year
  Sex: Male
  Weight: 106.6 kg

DRUGS (15)
  1. CHANTIX [Suspect]
     Indication: SMOKING CESSATION THERAPY
     Dates: start: 20090101
  2. CHANTIX [Suspect]
     Indication: SMOKING CESSATION THERAPY
     Dates: start: 20100121
  3. OMEPRAZOLE [Concomitant]
  4. ENALAPRIL MALEATE [Concomitant]
  5. SEROQUEL [Concomitant]
  6. LANTUS [Concomitant]
  7. METHADONE HCL [Concomitant]
  8. OXYCODONE HCL [Concomitant]
  9. LEVOTHYROXINE SODIUM [Concomitant]
  10. BUPROPION HYDROCHLORIDE (BUPROPION HYDROCHLORIDE) [Concomitant]
  11. SIMVASTATIN [Concomitant]
  12. VALPROIC ACID [Concomitant]
  13. ADVAIR DISKUS (FLUTICASONE PROPIONATE, SALMETEROL XINAFOATE) [Concomitant]
  14. FUROSEMIDE [Concomitant]
  15. POTASSIUM (POTASSIUM) [Concomitant]

REACTIONS (6)
  - BALANCE DISORDER [None]
  - CONVULSION [None]
  - DRUG INEFFECTIVE [None]
  - LOSS OF CONSCIOUSNESS [None]
  - NAUSEA [None]
  - SOMNOLENCE [None]
